FAERS Safety Report 18585484 (Version 1)
Quarter: 2020Q4

REPORT INFORMATION
  Report Type: Spontaneous
  Country: PH (occurrence: PH)
  Receive Date: 20201206
  Receipt Date: 20201206
  Transmission Date: 20210114
  Serious: Yes (Hospitalization)
  Sender: FDA-Public Use
  Company Number: None

PATIENT
  Age: 79 Year
  Sex: Female
  Weight: 55 kg

DRUGS (1)
  1. LEVOFLOXACIN. [Suspect]
     Active Substance: LEVOFLOXACIN
     Indication: URINARY TRACT INFECTION
     Route: 048
     Dates: start: 20201203, end: 20201203

REACTIONS (8)
  - Gastric disorder [None]
  - Malaise [None]
  - Unresponsive to stimuli [None]
  - Electrolyte imbalance [None]
  - Skin discolouration [None]
  - Depressed level of consciousness [None]
  - Nail discolouration [None]
  - Hyperhidrosis [None]

NARRATIVE: CASE EVENT DATE: 20201203
